FAERS Safety Report 4728222-0 (Version None)
Quarter: 2005Q3

REPORT INFORMATION
  Report Type: 
  Country: None (occurrence: None)
  Receive Date: 20050729
  Receipt Date: 20040823
  Transmission Date: 20060218
  Serious: No
  Sender: FDA-Public Use
  Company Number: US-BRISTOL-MYERS SQUIBB COMPANY-12679890

PATIENT
  Age: 11 Year
  Sex: Male
  Weight: 41 kg

DRUGS (9)
  1. BLEOMYCIN SULFATE [Suspect]
     Indication: HODGKIN'S DISEASE
     Dosage: = 10 UNITS/M^2. SECOND DATE OF ADMINISTRATION:21-JUL-2004
     Route: 042
     Dates: start: 20040709, end: 20040709
  2. VINBLASTINE [Concomitant]
  3. DOXORUBICIN HCL [Concomitant]
  4. DTIC-DOME [Concomitant]
  5. TYLENOL [Concomitant]
     Indication: PREMEDICATION
     Dates: start: 20040709, end: 20040709
  6. DEXAMETHASONE [Concomitant]
     Indication: PREMEDICATION
     Route: 042
     Dates: start: 20040709, end: 20040709
  7. BENADRYL [Concomitant]
     Indication: PREMEDICATION
     Route: 042
     Dates: start: 20040709, end: 20040709
  8. PULMICORT [Concomitant]
  9. ALBUTEROL [Concomitant]

REACTIONS (1)
  - DYSPNOEA [None]
